FAERS Safety Report 14108793 (Version 4)
Quarter: 2018Q1

REPORT INFORMATION
  Report Type: Not Available
  Country: US (occurrence: US)
  Receive Date: 20171019
  Receipt Date: 20180306
  Transmission Date: 20180508
  Serious: Yes (Hospitalization)
  Sender: FDA-Public Use
  Company Number: US-NEUROCRINE BIOSCIENCES INC.-2017NBI00890

PATIENT
  Age: 68 Year
  Sex: Female

DRUGS (19)
  1. INGREZZA [Suspect]
     Active Substance: VALBENAZINE
     Indication: DYSKINESIA
     Route: 048
     Dates: start: 20170603, end: 20171114
  2. EFFEXOR [Concomitant]
     Active Substance: VENLAFAXINE HYDROCHLORIDE
     Indication: DEPRESSION
  3. BENZTROPINE [Concomitant]
     Active Substance: BENZTROPINE
     Indication: PARKINSONISM
  4. GINKOBA [Concomitant]
     Active Substance: GINKGO
  5. NUPLAZID [Concomitant]
     Active Substance: PIMAVANSERIN TARTRATE
     Indication: PARANOIA
  6. NUPLAZID [Concomitant]
     Active Substance: PIMAVANSERIN TARTRATE
     Indication: PARKINSONISM
  7. LEVOTHYROXINE. [Concomitant]
     Active Substance: LEVOTHYROXINE
     Indication: THYROID DISORDER
  8. TAMSULOSIN [Concomitant]
     Active Substance: TAMSULOSIN
     Indication: URINARY RETENTION
  9. MELATONIN [Concomitant]
     Active Substance: MELATONIN
  10. CLONAZEPAM. [Concomitant]
     Active Substance: CLONAZEPAM
  11. PROPRANOLOL [Concomitant]
     Active Substance: PROPRANOLOL HYDROCHLORIDE
     Indication: TARDIVE DYSKINESIA
  12. OLANZAPINE. [Concomitant]
     Active Substance: OLANZAPINE
  13. INGREZZA [Suspect]
     Active Substance: VALBENAZINE
     Indication: TARDIVE DYSKINESIA
     Route: 048
     Dates: start: 20170526, end: 20170602
  14. BENZTROPINE [Concomitant]
     Active Substance: BENZTROPINE
     Indication: DYSTONIA
  15. ATORVASTATIN [Concomitant]
     Active Substance: ATORVASTATIN
     Indication: CEREBROVASCULAR ACCIDENT PROPHYLAXIS
  16. MULTIVITAMIN ADULT [Concomitant]
  17. ATORVASTATIN [Concomitant]
     Active Substance: ATORVASTATIN
     Indication: BLOOD CHOLESTEROL
  18. ATIVAN [Concomitant]
     Active Substance: LORAZEPAM
  19. HYDROCHLOROTHIAZIDE. [Concomitant]
     Active Substance: HYDROCHLOROTHIAZIDE

REACTIONS (5)
  - Dysphagia [Recovered/Resolved]
  - Communication disorder [Unknown]
  - Tardive dyskinesia [Not Recovered/Not Resolved]
  - Pulmonary thrombosis [Unknown]
  - Depression [Unknown]

NARRATIVE: CASE EVENT DATE: 201707
